FAERS Safety Report 9969896 (Version 1)
Quarter: 2014Q1

REPORT INFORMATION
  Report Type: Spontaneous
  Country: CA (occurrence: None)
  Receive Date: 20140304
  Receipt Date: 20140304
  Transmission Date: 20141002
  Serious: Yes (Other)
  Sender: FDA-Public Use
  Company Number: 2014P1001618

PATIENT
  Age: 70 Year
  Sex: Female

DRUGS (4)
  1. PREDNISONE TABLETS [Suspect]
     Indication: SLE ARTHRITIS
  2. CALCIUM [Concomitant]
  3. VITAMIN D [Concomitant]
  4. CALCITONIN NASAL SPRAY [Concomitant]

REACTIONS (5)
  - Fracture nonunion [None]
  - Resorption bone increased [None]
  - Injury [None]
  - Neck pain [None]
  - Fracture displacement [None]
